FAERS Safety Report 15397177 (Version 1)
Quarter: 2018Q3

REPORT INFORMATION
  Report Type: Other
  Country: US (occurrence: US)
  Receive Date: 20180918
  Receipt Date: 20180918
  Transmission Date: 20181010
  Serious: No
  Sender: FDA-Public Use
  Company Number: US-LEADIANT BIOSCIENCES INC-2018STPI000444

PATIENT
  Age: 35 Year
  Sex: Female

DRUGS (2)
  1. MATULANE [Suspect]
     Active Substance: PROCARBAZINE HYDROCHLORIDE
     Dosage: 100 MG, FOR 5 DAYS
     Dates: start: 20180305
  2. MATULANE [Suspect]
     Active Substance: PROCARBAZINE HYDROCHLORIDE
     Indication: HODGKIN^S DISEASE
     Dosage: 150 MG, FOR 9 DAYS
     Route: 048
     Dates: start: 20180305

REACTIONS (1)
  - Nerve injury [Not Recovered/Not Resolved]

NARRATIVE: CASE EVENT DATE: 201806
